FAERS Safety Report 8790910 (Version 2)
Quarter: 2013Q1

REPORT INFORMATION
  Report Type: Spontaneous
  Country: JP (occurrence: None)
  Receive Date: 20120910
  Receipt Date: 20121005
  Transmission Date: 20140127
  Serious: Yes (Other)
  Sender: FDA-Public Use
  Company Number: JP-2012-15897

PATIENT
  Age: 76 Year
  Sex: Male
  Weight: 56 kg

DRUGS (15)
  1. SAMSCA [Suspect]
     Indication: CARDIAC FAILURE
     Route: 048
     Dates: start: 20120712, end: 20120712
  2. VASOLAN [Suspect]
     Indication: ATRIAL FIBRILLATION
     Route: 041
     Dates: start: 20120712, end: 20120712
  3. ARTIST (CARVEDILOL) TABLET [Concomitant]
  4. ALDACTONE A (SPIRONOLACTONE) TABLET [Concomitant]
  5. DIART (AZOSEMIDE) TABLET [Concomitant]
  6. ANCARON (AMIODARONE HYDROCHLORIDE) TABLET [Concomitant]
  7. DAONIL (GLIBENCLAMIDE) TABLET [Concomitant]
  8. BASEN (VOGLIBOSE) ORODISPERSIBLE TABLET [Concomitant]
  9. DOBUPUM (DOBUTAMINE HYDROCHLORIDE) INJECTION [Concomitant]
  10. HANP (CARPERITIDE) INJECTION [Concomitant]
  11. LOWPSTON (FUROSEMIDE) INJECTION [Concomitant]
  12. LENDEM D (BROTIZOLAM) TABLET [Concomitant]
  13. PLAVIX (CLOPIDOGREL SULFATE) TABLET [Concomitant]
  14. TAKEPRON (LANSOPRAZOLE) TABLET [Concomitant]
  15. ZYRTEC (CETIRIZINE HYDROCHLORIDE) TABLET [Concomitant]

REACTIONS (4)
  - Blood urea increased [None]
  - Aspartate aminotransferase increased [None]
  - Alanine aminotransferase increased [None]
  - Pleural effusion [None]
